FAERS Safety Report 10402363 (Version 1)
Quarter: 2014Q3

REPORT INFORMATION
  Report Type: Spontaneous
  Country: US (occurrence: US)
  Receive Date: 20140822
  Receipt Date: 20140822
  Transmission Date: 20150326
  Serious: Yes (Other)
  Sender: FDA-Public Use
  Company Number: US-PFIZER INC-2014232850

PATIENT
  Age: 58 Year
  Sex: Female
  Weight: 77.1 kg

DRUGS (2)
  1. GLUMETZA [Concomitant]
     Active Substance: METFORMIN HYDROCHLORIDE
     Indication: TYPE 2 DIABETES MELLITUS
     Dosage: UNKNOWN DOSE (ELABORATED AS ^500^), 3X/DAY
  2. RELPAX [Suspect]
     Active Substance: ELETRIPTAN HYDROBROMIDE
     Indication: MIGRAINE
     Dosage: 40 MG, AS NEEDED

REACTIONS (2)
  - Rotator cuff syndrome [Unknown]
  - Nerve compression [Not Recovered/Not Resolved]
